FAERS Safety Report 17921606 (Version 1)
Quarter: 2020Q2

REPORT INFORMATION
  Report Type: Spontaneous
  Country: US (occurrence: US)
  Receive Date: 20200619
  Receipt Date: 20200619
  Transmission Date: 20200714
  Serious: Yes (Hospitalization)
  Sender: FDA-Public Use
  Company Number: None

PATIENT
  Age: 74 Year
  Sex: Female

DRUGS (1)
  1. MAVYRET [Suspect]
     Active Substance: GLECAPREVIR\PIBRENTASVIR
     Indication: ACUTE HEPATITIS C
     Dosage: 100-40MG 3 TABS ONCE DAILY ORAL
     Route: 048
     Dates: start: 20200513

REACTIONS (2)
  - Swelling face [None]
  - Wrong schedule [None]

NARRATIVE: CASE EVENT DATE: 20200605
